FAERS Safety Report 10012640 (Version 2)
Quarter: 2014Q2

REPORT INFORMATION
  Report Type: Spontaneous
  Country: US (occurrence: US)
  Receive Date: 20140314
  Receipt Date: 20140515
  Transmission Date: 20141212
  Serious: No
  Sender: FDA-Public Use
  Company Number: US-009507513-1403USA002012

PATIENT
  Sex: Female
  Weight: 83.9 kg

DRUGS (1)
  1. OXYTROL FOR WOMEN [Suspect]
     Indication: HYPERTONIC BLADDER
     Dosage: 1 DF, UNKNOWN
     Route: 062
     Dates: start: 2013, end: 201312

REACTIONS (2)
  - Pruritus [Unknown]
  - Application site erythema [Unknown]
